FAERS Safety Report 4547460-3 (Version None)
Quarter: 2005Q1

REPORT INFORMATION
  Report Type: 
  Country: None (occurrence: None)
  Receive Date: 20050107
  Receipt Date: 20041230
  Transmission Date: 20050727
  Serious: Yes (Hospitalization)
  Sender: FDA-Public Use
  Company Number: FR-GLAXOSMITHKLINE-B0363086A

PATIENT
  Age: 80 Year
  Sex: Male

DRUGS (5)
  1. AUGMENTIN '125' [Suspect]
     Indication: ILL-DEFINED DISORDER
     Dosage: 1G TWICE PER DAY
     Route: 048
     Dates: start: 20040929, end: 20041006
  2. PARACETAMOL + TRAMADOL [Suspect]
     Dosage: 25MG FOUR TIMES PER DAY
     Route: 048
     Dates: start: 20040929, end: 20041006
  3. CELESTENE [Concomitant]
     Dosage: 1UNIT THREE TIMES PER DAY
     Route: 048
     Dates: start: 20040929, end: 20041003
  4. ZESTRIL [Concomitant]
     Route: 048
  5. LASILIX [Concomitant]
     Dates: start: 20041011

REACTIONS (9)
  - BENIGN PROSTATIC HYPERPLASIA [None]
  - HAEMATURIA [None]
  - HYDROCELE [None]
  - HYPOALBUMINAEMIA [None]
  - HYPOPROTEINAEMIA [None]
  - NEPHROTIC SYNDROME [None]
  - OEDEMA PERIPHERAL [None]
  - PROTEINURIA [None]
  - WEIGHT INCREASED [None]
